FAERS Safety Report 7476232-5 (Version None)
Quarter: 2011Q2

REPORT INFORMATION
  Report Type: 
  Country: None (occurrence: None)
  Receive Date: 20110512
  Receipt Date: 20110509
  Transmission Date: 20111010
  Serious: Yes (Other)
  Sender: FDA-Public Use
  Company Number: PHHY2011US35470

PATIENT
  Sex: Female
  Weight: 39.909 kg

DRUGS (10)
  1. INVANZ [Concomitant]
  2. TOBI [Suspect]
     Indication: BRONCHIECTASIS
     Dosage: 300 MG, BID
     Dates: start: 20110419, end: 20110424
  3. CARTIA XT [Concomitant]
     Dosage: 120 MG, QD
     Route: 048
  4. PROAIR (FLUTICASONE PROPIONATE) [Concomitant]
     Dosage: 108 UG, UNK
  5. MYCOBUTIN [Concomitant]
     Dosage: 150 MG, QD
     Route: 048
  6. SEREVENT [Concomitant]
     Dosage: 50 UG, BID
     Route: 048
  7. SULFATRIM [Concomitant]
     Dosage: 200-40 MG/5 ML
     Route: 048
  8. ETHAMBUTOL HYDROCHLORIDE [Concomitant]
  9. CLARITHROMYCIN [Concomitant]
  10. BACTRIM [Concomitant]
     Dosage: 1 DF, BID
     Route: 048

REACTIONS (3)
  - BALANCE DISORDER [None]
  - MUSCULAR WEAKNESS [None]
  - GAIT DISTURBANCE [None]
